FAERS Safety Report 12683934 (Version 1)
Quarter: 2016Q3

REPORT INFORMATION
  Report Type: Spontaneous
  Country: GB (occurrence: GB)
  Receive Date: 20160825
  Receipt Date: 20160825
  Transmission Date: 20161109
  Serious: Yes (Other)
  Sender: FDA-Public Use
  Company Number: GB-PFIZER INC-2016393978

PATIENT
  Age: 44 Year
  Sex: Female
  Weight: 87 kg

DRUGS (8)
  1. COCODAMOL [Concomitant]
     Active Substance: ACETAMINOPHEN\CODEINE PHOSPHATE
  2. VENLAFAXINE HCL [Suspect]
     Active Substance: VENLAFAXINE HYDROCHLORIDE
     Indication: DEPRESSION
     Dosage: 300 MG, 1X/DAY (1X225MG AND 1X75MG EACH DAY)
     Route: 048
     Dates: start: 20090921
  3. QUETIAPINE. [Concomitant]
     Active Substance: QUETIAPINE
  4. CERELLE [Concomitant]
     Active Substance: DESOGESTREL
  5. LANSOPRAZOLE. [Concomitant]
     Active Substance: LANSOPRAZOLE
  6. LORATADINE. [Concomitant]
     Active Substance: LORATADINE
  7. ATORVASTATIN [Concomitant]
     Active Substance: ATORVASTATIN
  8. LEVOTHYROXINE. [Concomitant]
     Active Substance: LEVOTHYROXINE

REACTIONS (5)
  - Angioedema [Not Recovered/Not Resolved]
  - Hypersensitivity [Unknown]
  - Local swelling [Unknown]
  - Peripheral swelling [Unknown]
  - Swelling face [Unknown]

NARRATIVE: CASE EVENT DATE: 20150817
